FAERS Safety Report 20120221 (Version 18)
Quarter: 2025Q2

REPORT INFORMATION
  Report Type: Report from Study
  Country: US (occurrence: US)
  Receive Date: 20211126
  Receipt Date: 20250611
  Transmission Date: 20250716
  Serious: Yes (Hospitalization, Other)
  Sender: TAKEDA
  Company Number: US-TAKEDA-2021TUS075183

PATIENT
  Age: 81 Year
  Sex: Male
  Weight: 104 kg

DRUGS (23)
  1. .ALPHA.1-PROTEINASE INHIBITOR HUMAN [Suspect]
     Active Substance: .ALPHA.1-PROTEINASE INHIBITOR HUMAN
     Indication: Alpha-1 antitrypsin deficiency
     Dosage: 60 MILLIGRAM/KILOGRAM, 1/WEEK
     Dates: start: 20210309
  2. .ALPHA.1-PROTEINASE INHIBITOR HUMAN [Suspect]
     Active Substance: .ALPHA.1-PROTEINASE INHIBITOR HUMAN
     Indication: Immune system disorder
     Dosage: UNK UNK, 1/WEEK
     Dates: start: 20230320
  3. .ALPHA.1-PROTEINASE INHIBITOR HUMAN [Suspect]
     Active Substance: .ALPHA.1-PROTEINASE INHIBITOR HUMAN
     Dosage: UNK UNK, 1/WEEK
     Dates: start: 20240305
  4. PFIZER-BIONTECH COVID-19 VACCINE [Concomitant]
     Active Substance: TOZINAMERAN
  5. DIPHENHYDRAMINE [Concomitant]
     Active Substance: DIPHENHYDRAMINE
  6. TRINTELLIX [Concomitant]
     Active Substance: VORTIOXETINE HYDROBROMIDE
  7. SODIUM CHLORIDE [Concomitant]
     Active Substance: SODIUM CHLORIDE
  8. EPINEPHRINE [Concomitant]
     Active Substance: EPINEPHRINE
  9. ALFUZOSIN HYDROCHLORIDE [Concomitant]
     Active Substance: ALFUZOSIN HYDROCHLORIDE
  10. TRELEGY ELLIPTA [Concomitant]
     Active Substance: FLUTICASONE FUROATE\UMECLIDINIUM BROMIDE\VILANTEROL TRIFENATATE
  11. OXYGEN [Concomitant]
     Active Substance: OXYGEN
  12. ANDROGEL [Concomitant]
     Active Substance: TESTOSTERONE
  13. VIMPAT [Concomitant]
     Active Substance: LACOSAMIDE
  14. VITAMIN C [Concomitant]
     Active Substance: ASCORBIC ACID
  15. ELIQUIS [Concomitant]
     Active Substance: APIXABAN
  16. BENAZEPRIL HYDROCHLORIDE [Concomitant]
     Active Substance: BENAZEPRIL HYDROCHLORIDE
  17. Mucinex children^s stuffy nose [Concomitant]
  18. AMOXICILLIN [Concomitant]
     Active Substance: AMOXICILLIN
  19. ROBITUSSIN COUGH AND CHEST CONGESTION DM [Concomitant]
     Active Substance: DEXTROMETHORPHAN HYDROBROMIDE\GUAIFENESIN
  20. OXCARBAZEPINE [Concomitant]
     Active Substance: OXCARBAZEPINE
  21. TRAMADOL HCL [Concomitant]
     Active Substance: TRAMADOL HYDROCHLORIDE
  22. METAMUCIL [Concomitant]
     Active Substance: PLANTAGO SEED
  23. SODIUM CHLORIDE [Concomitant]
     Active Substance: SODIUM CHLORIDE

REACTIONS (27)
  - Pneumonia [Recovering/Resolving]
  - Skin cancer [Unknown]
  - Rhinovirus infection [Unknown]
  - Complication associated with device [Not Recovered/Not Resolved]
  - Feeding disorder [Unknown]
  - Medical device discomfort [Unknown]
  - Post procedural complication [Unknown]
  - Vertigo [Unknown]
  - Infusion site pain [Recovered/Resolved]
  - Infusion site oedema [Recovered/Resolved]
  - Respiratory tract infection [Unknown]
  - Fall [Unknown]
  - Sinus disorder [Unknown]
  - Procedural pain [Unknown]
  - Gingival swelling [Unknown]
  - Post procedural erythema [Unknown]
  - Scab [Unknown]
  - Medical device pain [Unknown]
  - Skin laceration [Unknown]
  - Product use in unapproved indication [Unknown]
  - Head injury [Unknown]
  - Respiratory tract congestion [Unknown]
  - Sinusitis [Unknown]
  - Hypersensitivity [Unknown]
  - Upper respiratory tract infection [Unknown]
  - Cough [Unknown]
  - Product dose omission issue [Unknown]

NARRATIVE: CASE EVENT DATE: 20220301
